FAERS Safety Report 8503591-4 (Version None)
Quarter: 2012Q3

REPORT INFORMATION
  Report Type: 
  Country: None (occurrence: None)
  Receive Date: 20120711
  Receipt Date: 20120703
  Transmission Date: 20120928
  Serious: Yes (Hospitalization, Other)
  Sender: FDA-Public Use
  Company Number: PR-ABBOTT-12P-131-0953307-00

PATIENT
  Sex: Male
  Weight: 84.444 kg

DRUGS (8)
  1. NORVASC [Concomitant]
     Indication: HYPERTENSION
     Route: 048
  2. GLUCOTROL [Concomitant]
     Indication: DIABETES MELLITUS
  3. COZAAR [Concomitant]
     Indication: HYPERTENSION
  4. HUMULIN N [Concomitant]
     Indication: DIABETES MELLITUS
  5. HUMIRA [Suspect]
     Indication: RHEUMATOID ARTHRITIS
     Route: 058
     Dates: start: 20030101
  6. DOXAZOSIN MESYLATE [Suspect]
     Indication: BLOOD PRESSURE
     Dosage: 8MG DAILY
     Route: 048
     Dates: end: 20120630
  7. PREDNISONE TAB [Concomitant]
     Indication: PRODUCT USED FOR UNKNOWN INDICATION
  8. HUMULIN R [Concomitant]
     Indication: DIABETES MELLITUS

REACTIONS (4)
  - BLOOD GLUCOSE INCREASED [None]
  - SKIN CANCER [None]
  - DERMATITIS ALLERGIC [None]
  - HYPERTENSION [None]
